FAERS Safety Report 11951552 (Version 1)
Quarter: 2016Q1

REPORT INFORMATION
  Report Type: Spontaneous
  Country: US (occurrence: US)
  Receive Date: 20160126
  Receipt Date: 20160126
  Transmission Date: 20160526
  Serious: Yes (Other)
  Sender: FDA-Public Use
  Company Number: US-009507513-1601USA005836

PATIENT
  Sex: Female

DRUGS (2)
  1. FOSAMAX [Suspect]
     Active Substance: ALENDRONATE SODIUM
     Dosage: UNK
     Route: 048
  2. FORTEO [Suspect]
     Active Substance: TERIPARATIDE
     Dosage: UNK

REACTIONS (9)
  - Hip fracture [Unknown]
  - Hip fracture [Unknown]
  - Fibula fracture [Unknown]
  - Bone density decreased [Recovering/Resolving]
  - Femur fracture [Unknown]
  - Fracture [Unknown]
  - Tibia fracture [Unknown]
  - Pelvic fracture [Unknown]
  - Scapula fracture [Recovered/Resolved]

NARRATIVE: CASE EVENT DATE: 2000
